FAERS Safety Report 7520887-3 (Version None)
Quarter: 2011Q2

REPORT INFORMATION
  Report Type: 
  Country: None (occurrence: None)
  Receive Date: 20110603
  Receipt Date: 20101122
  Transmission Date: 20111010
  Serious: Yes (Death, Hospitalization, Other)
  Sender: FDA-Public Use
  Company Number: BR-BAYER-201021171LA

PATIENT
  Age: 64 Year
  Sex: Female

DRUGS (1)
  1. NEXAVAR [Suspect]
     Indication: HEPATIC NEOPLASM MALIGNANT
     Dosage: DAILY DOSE 2 DF
     Route: 065
     Dates: start: 20100901, end: 20101001

REACTIONS (2)
  - NOSOCOMIAL INFECTION [None]
  - HEPATIC NEOPLASM [None]
